FAERS Safety Report 5647752-0 (Version None)
Quarter: 2008Q1

REPORT INFORMATION
  Report Type: 
  Country: None (occurrence: None)
  Receive Date: 20080228
  Receipt Date: 20080220
  Transmission Date: 20080703
  Serious: Yes (Hospitalization)
  Sender: FDA-Public Use
  Company Number: 163-20785-08021216

PATIENT
  Age: 65 Year
  Sex: Male

DRUGS (2)
  1. THALOMID [Suspect]
     Indication: MULTIPLE MYELOMA
     Dosage: 200 MG, 1 IN 1 D, ORAL, 100 MG, 1 IN 1 D, ORAL
     Route: 048
     Dates: start: 20080211, end: 20080201
  2. THALOMID [Suspect]
     Indication: MULTIPLE MYELOMA
     Dosage: 200 MG, 1 IN 1 D, ORAL, 100 MG, 1 IN 1 D, ORAL
     Route: 048
     Dates: start: 20080201

REACTIONS (2)
  - RENAL FAILURE [None]
  - THROMBOSIS [None]
